FAERS Safety Report 13285751 (Version 1)
Quarter: 2017Q1

REPORT INFORMATION
  Report Type: Spontaneous
  Country: US (occurrence: US)
  Receive Date: 20170301
  Receipt Date: 20170301
  Transmission Date: 20170428
  Serious: Yes (Hospitalization)
  Sender: FDA-Public Use
  Company Number: None

PATIENT
  Age: 57 Year
  Sex: Female

DRUGS (2)
  1. GAMMAGARD [Suspect]
     Active Substance: HUMAN IMMUNOGLOBULIN G
     Indication: IMMUNODEFICIENCY COMMON VARIABLE
     Dosage: FREQUENCY - EVERY 4 WEEKS
     Route: 042
  2. GAMMAGARD [Suspect]
     Active Substance: HUMAN IMMUNOGLOBULIN G
     Dosage: FREQUENCY - EVERY 4 WEEKS
     Route: 042

REACTIONS (4)
  - Migraine [None]
  - Nausea [None]
  - Infusion related reaction [None]
  - Cystitis interstitial [None]

NARRATIVE: CASE EVENT DATE: 20170226
